FAERS Safety Report 10065413 (Version 1)
Quarter: 2014Q2

REPORT INFORMATION
  Report Type: Spontaneous
  Country: JP (occurrence: JP)
  Receive Date: 20140408
  Receipt Date: 20140408
  Transmission Date: 20141212
  Serious: Yes (Other)
  Sender: FDA-Public Use
  Company Number: JP-GLAXOSMITHKLINE-B0959473A

PATIENT
  Age: 5 Year
  Sex: Male
  Weight: 17.5 kg

DRUGS (5)
  1. LAMICTAL [Suspect]
     Indication: EPILEPSY
     Dosage: 21MG TWICE PER DAY
     Route: 048
     Dates: start: 201009
  2. LAMICTAL [Suspect]
     Indication: EPILEPSY
     Dosage: 70MG PER DAY
     Route: 048
     Dates: end: 20140106
  3. DEPAKENE [Concomitant]
     Indication: EPILEPSY
     Dosage: 3ML THREE TIMES PER DAY
     Route: 048
     Dates: start: 200908
  4. E KEPPRA [Concomitant]
     Indication: EPILEPSY
     Route: 048
  5. SIMPLE SYRUP [Concomitant]
     Route: 048

REACTIONS (5)
  - Erythema multiforme [Recovered/Resolved]
  - Epilepsy [Unknown]
  - Rash [Recovered/Resolved]
  - Nasopharyngitis [Unknown]
  - Drug effect incomplete [Unknown]
